FAERS Safety Report 17704516 (Version 1)
Quarter: 2020Q2

REPORT INFORMATION
  Report Type: Spontaneous
  Country: US (occurrence: US)
  Receive Date: 20200424
  Receipt Date: 20200424
  Transmission Date: 20200714
  Serious: Yes (Hospitalization)
  Sender: FDA-Public Use
  Company Number: None

PATIENT
  Age: 52 Year
  Sex: Male

DRUGS (22)
  1. SOD POLY SUL SUS [Concomitant]
  2. OMEPRAZOLE. [Concomitant]
     Active Substance: OMEPRAZOLE
  3. AUGMENTIN [Concomitant]
     Active Substance: AMOXICILLIN\CLAVULANATE POTASSIUM
  4. LOVENOX [Concomitant]
     Active Substance: ENOXAPARIN SODIUM
  5. LIPITOR [Concomitant]
     Active Substance: ATORVASTATIN CALCIUM
  6. ACETYLCYSTEINE. [Concomitant]
     Active Substance: ACETYLCYSTEINE
  7. MYCOPHENOLATE [Suspect]
     Active Substance: MYCOPHENOLIC ACID
     Indication: HEART TRANSPLANT
     Route: 048
     Dates: start: 20200229
  8. LISINOPRIL. [Concomitant]
     Active Substance: LISINOPRIL
  9. DIPYRIDAMOLE. [Concomitant]
     Active Substance: DIPYRIDAMOLE
  10. WARFARIN [Concomitant]
     Active Substance: WARFARIN
  11. APAP/CODEINE [Concomitant]
     Active Substance: ACETAMINOPHEN\CODEINE PHOSPHATE
  12. HYDRALAZINE [Concomitant]
     Active Substance: HYDRALAZINE HYDROCHLORIDE
  13. ZOLPIDEM [Concomitant]
     Active Substance: ZOLPIDEM TARTRATE
  14. METFORRNIN [Concomitant]
  15. AMLODIPINE [Concomitant]
     Active Substance: AMLODIPINE BESYLATE
  16. VIAGRA [Concomitant]
     Active Substance: SILDENAFIL CITRATE
  17. MAGNESIUM [Concomitant]
     Active Substance: MAGNESIUM
  18. LEVAQUIN [Concomitant]
     Active Substance: LEVOFLOXACIN
  19. FOLIC ACID. [Concomitant]
     Active Substance: FOLIC ACID
  20. OXYCODONE [Concomitant]
     Active Substance: OXYCODONE
  21. ALPRAZOLAM. [Concomitant]
     Active Substance: ALPRAZOLAM
  22. AVELOX [Concomitant]
     Active Substance: MOXIFLOXACIN HYDROCHLORIDE

REACTIONS (5)
  - Pyrexia [None]
  - Dialysis [None]
  - Coronavirus infection [None]
  - Vomiting [None]
  - Therapy interrupted [None]
